FAERS Safety Report 17301546 (Version 1)
Quarter: 2020Q1

REPORT INFORMATION
  Report Type: Spontaneous
  Country: PT (occurrence: PT)
  Receive Date: 20200122
  Receipt Date: 20200122
  Transmission Date: 20200409
  Serious: Yes (Hospitalization)
  Sender: FDA-Public Use
  Company Number: PT-MYLANLABS-2020M1006275

PATIENT
  Age: 54 Year
  Sex: Female

DRUGS (1)
  1. GEMCITABINE. [Suspect]
     Active Substance: GEMCITABINE
     Indication: SYNOVIAL SARCOMA
     Dosage: 1000 MILLIGRAM/SQ. METER, QW

REACTIONS (1)
  - Thrombotic microangiopathy [Recovered/Resolved]
